FAERS Safety Report 23842406 (Version 2)
Quarter: 2024Q2

REPORT INFORMATION
  Report Type: Spontaneous
  Country: JP (occurrence: JP)
  Receive Date: 20240510
  Receipt Date: 20240605
  Transmission Date: 20240716
  Serious: No
  Sender: FDA-Public Use
  Company Number: JP-UCBJ-CD202403968UCBPHAPROD

PATIENT
  Age: 8 Decade
  Sex: Male

DRUGS (3)
  1. VIMPAT [Suspect]
     Active Substance: LACOSAMIDE
     Indication: Product used for unknown indication
     Dosage: UNK, FOR TWO MONTHS
     Route: 041
  2. LEVETIRACETAM [Suspect]
     Active Substance: LEVETIRACETAM
     Indication: Product used for unknown indication
     Dosage: UNK, COUPLE OF YEARS
     Route: 041
  3. LEVETIRACETAM [Suspect]
     Active Substance: LEVETIRACETAM
     Indication: Product used for unknown indication
     Dosage: UNK, COUPLE OF YEARS
     Route: 048

REACTIONS (2)
  - Hepatic function abnormal [Unknown]
  - Febrile infection [Unknown]
